FAERS Safety Report 7121952-5 (Version None)
Quarter: 2010Q4

REPORT INFORMATION
  Report Type: 
  Country: None (occurrence: None)
  Receive Date: 20101124
  Receipt Date: 20101116
  Transmission Date: 20110411
  Serious: Yes (Hospitalization)
  Sender: FDA-Public Use
  Company Number: A0700841A

PATIENT
  Sex: Female
  Weight: 81.8 kg

DRUGS (10)
  1. AVANDIA [Suspect]
     Dosage: 4MG TWICE PER DAY
     Route: 048
     Dates: end: 20070101
  2. MYSOLINE [Concomitant]
  3. LIPITOR [Concomitant]
  4. LOPID [Concomitant]
  5. INSULIN [Concomitant]
  6. DIOVAN [Concomitant]
  7. LOTENSIN [Concomitant]
  8. LEVOXYL [Concomitant]
  9. ZOLOFT [Concomitant]
  10. LOPRESSOR [Concomitant]

REACTIONS (4)
  - CARDIAC FAILURE CONGESTIVE [None]
  - CEREBROVASCULAR ACCIDENT [None]
  - INJURY [None]
  - MYOCARDIAL INFARCTION [None]
